FAERS Safety Report 10005914 (Version 2)
Quarter: 2014Q1

REPORT INFORMATION
  Report Type: Spontaneous
  Country: US (occurrence: US)
  Receive Date: 20140313
  Receipt Date: 20140317
  Transmission Date: 20141002
  Serious: Yes (Other)
  Sender: FDA-Public Use
  Company Number: US-DRREDDYS-USA/USA/14/0038846

PATIENT
  Age: 17 Year
  Sex: Male
  Weight: 97.61 kg

DRUGS (3)
  1. ZENATANE [Suspect]
     Indication: ACNE
     Route: 048
     Dates: start: 201310, end: 20140220
  2. CLOBETASOL [Concomitant]
     Indication: PRODUCT USED FOR UNKNOWN INDICATION
     Route: 065
  3. ALBUTEROL [Concomitant]
     Indication: ASTHMA EXERCISE INDUCED
     Route: 055

REACTIONS (2)
  - Mood swings [Recovering/Resolving]
  - Anger [Recovering/Resolving]
